FAERS Safety Report 7782176-1 (Version None)
Quarter: 2011Q3

REPORT INFORMATION
  Report Type: 
  Country: None (occurrence: None)
  Receive Date: 20110927
  Receipt Date: 20110920
  Transmission Date: 20111222
  Serious: Yes (Other)
  Sender: FDA-Public Use
  Company Number: US-AMGEN-USASP2011048745

PATIENT
  Age: 77 Year
  Sex: Female

DRUGS (16)
  1. LIPITOR [Concomitant]
     Dosage: UNK
  2. ATARAX [Concomitant]
     Dosage: UNK
  3. VITAMIN E                          /00110501/ [Concomitant]
     Dosage: UNK
  4. TEKTURNA [Concomitant]
     Dosage: UNK
  5. ASPIRIN [Concomitant]
     Dosage: UNK
  6. PROLIA [Suspect]
     Indication: OSTEOPOROSIS POSTMENOPAUSAL
     Dosage: UNK UNK, Q6MO
     Dates: start: 20110101
  7. LASIX [Concomitant]
     Dosage: UNK
  8. ZETIA [Concomitant]
     Dosage: UNK
  9. VICOPROFEN [Concomitant]
     Dosage: 2 MG, UNK
  10. NEXIUM [Concomitant]
     Dosage: UNK
  11. FOLIC ACID [Concomitant]
     Dosage: UNK
  12. INDOCIN                            /00003801/ [Concomitant]
     Dosage: UNK
  13. TOPROL-XL [Concomitant]
     Dosage: UNK
  14. DITROPAN [Concomitant]
     Dosage: UNK
  15. VITAMIN D [Concomitant]
     Dosage: UNK
  16. METOLAZONE [Concomitant]
     Dosage: UNK

REACTIONS (9)
  - ARTHRALGIA [None]
  - PAIN [None]
  - PYREXIA [None]
  - FEAR OF DISEASE [None]
  - IMMUNE SYSTEM DISORDER [None]
  - ABDOMINAL DISCOMFORT [None]
  - ANXIETY [None]
  - CHILLS [None]
  - TREMOR [None]
